FAERS Safety Report 6158766-9 (Version None)
Quarter: 2009Q2

REPORT INFORMATION
  Report Type: 
  Country: None (occurrence: None)
  Receive Date: 20090417
  Receipt Date: 20090407
  Transmission Date: 20091009
  Serious: Yes (Other)
  Sender: FDA-Public Use
  Company Number: B0569305A

PATIENT
  Sex: Female
  Weight: 57.2 kg

DRUGS (2)
  1. TYVERB [Suspect]
     Dosage: 1250MG PER DAY
     Route: 048
     Dates: start: 20081203
  2. XELODA [Suspect]
     Dosage: 3000MG PER DAY
     Route: 048
     Dates: start: 20081203

REACTIONS (4)
  - DIARRHOEA [None]
  - NAUSEA [None]
  - PALMAR-PLANTAR ERYTHRODYSAESTHESIA SYNDROME [None]
  - VOMITING [None]
